FAERS Safety Report 5027222-3 (Version None)
Quarter: 2006Q2

REPORT INFORMATION
  Report Type: 
  Country: None (occurrence: None)
  Receive Date: 20060615
  Receipt Date: 20060608
  Transmission Date: 20061013
  Serious: Yes (Hospitalization)
  Sender: FDA-Public Use
  Company Number: DE-BOEHRINGER INGELHEIM PHARMACEUTICALS, INC.-2006-DE-02957DE

PATIENT
  Sex: Male
  Weight: 80 kg

DRUGS (2)
  1. ANDANTE 3 MG [Suspect]
     Route: 048
  2. MICARDIS [Suspect]
     Route: 048

REACTIONS (2)
  - DRUG ABUSER [None]
  - SUICIDE ATTEMPT [None]
